FAERS Safety Report 18475440 (Version 2)
Quarter: 2023Q2

REPORT INFORMATION
  Report Type: Spontaneous
  Country: US (occurrence: US)
  Receive Date: 20201106
  Receipt Date: 20230613
  Transmission Date: 20230721
  Serious: Yes (Death, Hospitalization, Disabling, Other)
  Sender: FDA-Public Use
  Company Number: US-PURDUE-USA-2020-0174978

PATIENT
  Age: 29 Year
  Sex: Male

DRUGS (6)
  1. OXYCONTIN [Suspect]
     Active Substance: OXYCODONE HYDROCHLORIDE
     Indication: Pain
     Dosage: UNKNOWN
     Route: 048
  2. OXYCODONE HYDROCHLORIDE [Suspect]
     Active Substance: OXYCODONE HYDROCHLORIDE
     Indication: Product used for unknown indication
     Dosage: UNKNOWN
     Route: 065
  3. HEROIN [Suspect]
     Active Substance: DIAMORPHINE
     Indication: Product used for unknown indication
     Dosage: UNKNOWN
     Route: 065
  4. FENTANYL CITRATE [Suspect]
     Active Substance: FENTANYL CITRATE
     Indication: Product used for unknown indication
     Dosage: UNKNOWN
     Route: 048
  5. SUBOXONE [Suspect]
     Active Substance: BUPRENORPHINE HYDROCHLORIDE\NALOXONE HYDROCHLORIDE
     Indication: Product used for unknown indication
     Dosage: UNKNOWN
     Route: 065
  6. METHADONE [Suspect]
     Active Substance: METHADONE HYDROCHLORIDE
     Indication: Product used for unknown indication
     Dosage: 10 MILLIGRAM UNKNOWN
     Route: 065

REACTIONS (17)
  - Toxicity to various agents [Fatal]
  - Overdose [Fatal]
  - Endocarditis [Unknown]
  - Drug dependence [Unknown]
  - Drug abuse [Unknown]
  - Memory impairment [Unknown]
  - Depression [Unknown]
  - Motor dysfunction [Unknown]
  - Tooth disorder [Unknown]
  - Weight decreased [Unknown]
  - Decreased appetite [Unknown]
  - Brain fog [Unknown]
  - Judgement impaired [Unknown]
  - General physical health deterioration [Unknown]
  - Pain [Unknown]
  - Emotional distress [Unknown]
  - Laziness [Unknown]

NARRATIVE: CASE EVENT DATE: 20120707
